FAERS Safety Report 23678153 (Version 1)
Quarter: 2024Q1

REPORT INFORMATION
  Report Type: Spontaneous
  Country: US (occurrence: US)
  Receive Date: 20240327
  Receipt Date: 20240327
  Transmission Date: 20240410
  Serious: No
  Sender: FDA-Public Use
  Company Number: US-TEVA-VS-3149904

PATIENT
  Age: 78 Year
  Sex: Female

DRUGS (1)
  1. LEVALBUTEROL [Suspect]
     Active Substance: LEVALBUTEROL
     Indication: Product used for unknown indication
     Dosage: FORM STRENGTH: 1.25/3 MG/ML
     Route: 065

REACTIONS (3)
  - Nervousness [Unknown]
  - Tremor [Unknown]
  - Dysstasia [Unknown]
